FAERS Safety Report 6116348-9 (Version None)
Quarter: 2009Q1

REPORT INFORMATION
  Report Type: 
  Country: None (occurrence: None)
  Receive Date: 20090314
  Receipt Date: 20081222
  Transmission Date: 20090719
  Serious: Yes (Other)
  Sender: FDA-Public Use
  Company Number: US-ABBOTT-08P-163-0491883-00

PATIENT
  Sex: Female

DRUGS (2)
  1. HUMIRA [Suspect]
     Indication: CROHN'S DISEASE
     Dates: start: 20070101, end: 20081208
  2. MERCAPTOPURINE [Concomitant]
     Indication: CROHN'S DISEASE

REACTIONS (6)
  - COUGH [None]
  - HEPATIC LESION [None]
  - LUNG INFILTRATION [None]
  - LYMPHADENOPATHY [None]
  - SPLENIC LESION [None]
  - TUBERCULOSIS [None]
